FAERS Safety Report 7884581-1 (Version None)
Quarter: 2011Q4

REPORT INFORMATION
  Report Type: 
  Country: None (occurrence: None)
  Receive Date: 20111102
  Receipt Date: 20111024
  Transmission Date: 20120403
  Serious: No
  Sender: FDA-Public Use
  Company Number: US-B.I. PHARMACEUTICALS,INC./RIDGEFIELD-2011-BP-23203BP

PATIENT
  Sex: Female

DRUGS (4)
  1. ASCORBIC ACID [Concomitant]
  2. FLECAINIDE ACETATE [Concomitant]
  3. PRADAXA [Suspect]
     Indication: DRUG THERAPY CHANGED
     Route: 048
     Dates: start: 20110629
  4. DILTIAZEM [Concomitant]

REACTIONS (5)
  - SWELLING FACE [None]
  - RASH PRURITIC [None]
  - OROPHARYNGEAL PAIN [None]
  - PHARYNGEAL OEDEMA [None]
  - DIZZINESS [None]
